FAERS Safety Report 9129571 (Version 2)
Quarter: 2013Q2

REPORT INFORMATION
  Report Type: Spontaneous
  Country: JP (occurrence: JP)
  Receive Date: 20130125
  Receipt Date: 20130418
  Transmission Date: 20140414
  Serious: Yes (Hospitalization)
  Sender: FDA-Public Use
  Company Number: JP-ROCHE-1183403

PATIENT
  Age: 73 Year
  Sex: Female
  Weight: 26 kg

DRUGS (6)
  1. XELODA [Suspect]
     Indication: METASTATIC GASTRIC CANCER
     Route: 048
     Dates: start: 20120925, end: 20121210
  2. HERCEPTIN [Suspect]
     Indication: METASTATIC GASTRIC CANCER
     Dosage: DOSAGE IS UNCERTAIN.
     Route: 041
     Dates: start: 20120925, end: 20120925
  3. HERCEPTIN [Suspect]
     Route: 041
     Dates: start: 20121016, end: 20121127
  4. CISPLATIN [Concomitant]
     Indication: METASTATIC GASTRIC CANCER
     Dosage: DOSAGE IS UNCERTAIN.
     Route: 041
  5. RANMARK [Concomitant]
     Indication: METASTATIC GASTRIC CANCER
     Route: 058
     Dates: start: 20121120, end: 20121120
  6. REFLEX (JAPAN) [Concomitant]
     Route: 048

REACTIONS (3)
  - Decreased appetite [Recovered/Resolved]
  - Malnutrition [Unknown]
  - Hypophosphataemia [Recovered/Resolved]
